FAERS Safety Report 4906303-6 (Version None)
Quarter: 2006Q1

REPORT INFORMATION
  Report Type: 
  Country: None (occurrence: None)
  Receive Date: 20060207
  Receipt Date: 20060125
  Transmission Date: 20060701
  Serious: Yes (Other)
  Sender: FDA-Public Use
  Company Number: 2006013037

PATIENT
  Age: 2 Year
  Sex: Female

DRUGS (2)
  1. AZITHROMYCIN [Suspect]
     Indication: PNEUMONIA PRIMARY ATYPICAL
     Dosage: (120 MG), ORAL
     Route: 048
     Dates: start: 20051230, end: 20060101
  2. ERYTHROMYCIN [Concomitant]

REACTIONS (2)
  - TONGUE BLACK HAIRY [None]
  - TOOTH DISCOLOURATION [None]
